FAERS Safety Report 7683908-3 (Version None)
Quarter: 2011Q3

REPORT INFORMATION
  Report Type: 
  Country: None (occurrence: None)
  Receive Date: 20110815
  Receipt Date: 20110809
  Transmission Date: 20111222
  Serious: Yes (Disabling, Other)
  Sender: FDA-Public Use
  Company Number: US-PFIZER INC-2011184614

PATIENT
  Sex: Female

DRUGS (1)
  1. LYRICA [Suspect]
     Dosage: UNK

REACTIONS (5)
  - WITHDRAWAL SYNDROME [None]
  - SPINAL DISORDER [None]
  - KNEE DEFORMITY [None]
  - WALKING DISABILITY [None]
  - PAIN [None]
